FAERS Safety Report 7121413-3 (Version None)
Quarter: 2010Q4

REPORT INFORMATION
  Report Type: 
  Country: None (occurrence: None)
  Receive Date: 20101119
  Receipt Date: 20101119
  Transmission Date: 20110411
  Serious: Yes (Other)
  Sender: FDA-Public Use
  Company Number: None

PATIENT
  Age: 74 Year
  Sex: Female
  Weight: 60.782 kg

DRUGS (1)
  1. TYLENOL-500 [Suspect]
     Indication: PAIN
     Dosage: 2 TABS ONCE
     Dates: start: 20101115, end: 20101115

REACTIONS (8)
  - CONFUSIONAL STATE [None]
  - HALLUCINATION [None]
  - INSOMNIA [None]
  - NAUSEA [None]
  - PRODUCT QUALITY ISSUE [None]
  - PRURITUS [None]
  - URTICARIA [None]
  - VISION BLURRED [None]
